FAERS Safety Report 6530844-1 (Version None)
Quarter: 2010Q1

REPORT INFORMATION
  Report Type: 
  Country: None (occurrence: None)
  Receive Date: 20100108
  Receipt Date: 20090401
  Transmission Date: 20100710
  Serious: No
  Sender: FDA-Public Use
  Company Number: A0776622A

PATIENT
  Age: 55 Year
  Sex: Male

DRUGS (9)
  1. LOVAZA [Suspect]
     Indication: BLOOD CHOLESTEROL INCREASED
     Dosage: 1CAP FOUR TIMES PER DAY
     Route: 048
  2. LIPITOR [Concomitant]
  3. LISINOPRIL [Concomitant]
  4. ASPIRIN [Concomitant]
  5. MIRTAZAPINE [Concomitant]
  6. MULTI-VITAMIN [Concomitant]
  7. VITAMIN B COMPLEX CAP [Concomitant]
  8. VITAMIN D [Concomitant]
  9. OMACOR [Concomitant]
     Route: 048

REACTIONS (1)
  - DIARRHOEA [None]
